FAERS Safety Report 4711560-5 (Version None)
Quarter: 2005Q3

REPORT INFORMATION
  Report Type: 
  Country: None (occurrence: None)
  Receive Date: 20050712
  Receipt Date: 20050627
  Transmission Date: 20060218
  Serious: Yes (Hospitalization)
  Sender: FDA-Public Use
  Company Number: US-BOEHRINGER INGELHEIM PHARMACEUTICALS, INC.-2005-DE-02466GD

PATIENT
  Age: 44 Year
  Sex: Male

DRUGS (7)
  1. CLONIDINE [Suspect]
     Indication: DRUG DETOXIFICATION
     Dosage: TTS 2 FOR BP }110/70, TTS 1  FOR BP BETWEEN 80/50 AND 110/70,
     Route: 062
  2. PARACEFAN [Suspect]
     Indication: DRUG DETOXIFICATION
     Dosage: 0.1 MG FOR OWA GRADE 1-2, 0.2 MG FOR OWA GRADE 3-4
  3. PARACEFAN [Suspect]
     Dosage: 0.2 MG AT 4 A.M., AT 6 A.M., AT 8 A.M.FOR BP}110/70; 0.1 MG AT 4 A.M., 6 A.M., 8 A.M. FOR BP BETWEEN
     Route: 048
  4. LORAZEPAM [Suspect]
     Indication: ANXIETY
     Dosage: 1 MG Q H PRN
  5. LORAZEPAM [Suspect]
     Indication: AGITATION
     Dosage: 2 MG AT 4 A.M., AT 6 A.M., AT 8 A.M.
     Route: 048
  6. LORAZEPAM [Suspect]
     Indication: MYALGIA
  7. NALTREXONE [Suspect]
     Indication: DRUG DETOXIFICATION
     Route: 048

REACTIONS (1)
  - DELIRIUM [None]
